FAERS Safety Report 5658276-9 (Version None)
Quarter: 2008Q1

REPORT INFORMATION
  Report Type: 
  Country: None (occurrence: None)
  Receive Date: 20080310
  Receipt Date: 20070119
  Transmission Date: 20080703
  Serious: No
  Sender: FDA-Public Use
  Company Number: US-BAYER-200710224BCC

PATIENT
  Age: 82 Year
  Sex: Female
  Weight: 81 kg

DRUGS (6)
  1. ALEVE [Suspect]
     Indication: BACK PAIN
     Dosage: TOTAL DAILY DOSE: 440 MG  UNIT DOSE: 220 MG
     Route: 048
     Dates: start: 20070101
  2. ATACAND [Concomitant]
  3. ASPIRIN STORE BRAND [Concomitant]
     Route: 048
  4. LESCOL [Concomitant]
  5. DETROL LA [Concomitant]
  6. SULINDAC [Concomitant]

REACTIONS (1)
  - BACK PAIN [None]
